FAERS Safety Report 4746505-5 (Version None)
Quarter: 2005Q3

REPORT INFORMATION
  Report Type: 
  Country: None (occurrence: None)
  Receive Date: 20050815
  Receipt Date: 20050727
  Transmission Date: 20060218
  Serious: Yes (Hospitalization)
  Sender: FDA-Public Use
  Company Number: 2005112385

PATIENT
  Age: 53 Year
  Sex: Female

DRUGS (8)
  1. ATARAX [Suspect]
     Indication: ANXIETY
     Dosage: 25 MG, ORAL
     Route: 048
     Dates: start: 20041201
  2. ISONIAZID [Suspect]
     Indication: TUBERCULOSIS
     Dosage: 300 MG, ORAL
     Route: 048
     Dates: start: 20050413
  3. RIFADIN [Suspect]
     Indication: TUBERCULOSIS
     Dosage: 600 MG, ORAL
     Route: 048
     Dates: start: 20050413
  4. DEXAMBUTOL        (ETHAMBUTOL DIHYDROCHLORIDE) [Suspect]
     Indication: TUBERCULOSIS
     Dosage: 1000 MG, ORAL
     Route: 048
     Dates: start: 20050414
  5. NICOTINAMIDE [Suspect]
     Indication: NUTRITIONAL SUPPORT
     Dosage: ORAL
     Route: 048
     Dates: start: 20041201
  6. OMEPRAZOLE [Suspect]
     Indication: GASTRITIS
     Dosage: 20 MG, ORAL
     Route: 048
     Dates: start: 20050301, end: 20050629
  7. FOLIC ACID [Concomitant]
  8. VITAMIN B1 AND B6            (PYRIDOXINE, THIAMINE) [Concomitant]

REACTIONS (11)
  - ANAEMIA [None]
  - ANXIETY [None]
  - CONDITION AGGRAVATED [None]
  - GASTRIC DISORDER [None]
  - GASTRITIS [None]
  - HEPATIC FAILURE [None]
  - HEPATOCELLULAR DAMAGE [None]
  - LUNG INJURY [None]
  - MALNUTRITION [None]
  - NEUTROPENIA [None]
  - TUBERCULOSIS [None]
